FAERS Safety Report 4771262-6 (Version None)
Quarter: 2005Q3

REPORT INFORMATION
  Report Type: 
  Country: None (occurrence: None)
  Receive Date: 20050914
  Receipt Date: 20050830
  Transmission Date: 20060218
  Serious: Yes (Other)
  Sender: FDA-Public Use
  Company Number: USA0508106894

PATIENT
  Age: 82 Year
  Sex: Female

DRUGS (1)
  1. FORTEO [Suspect]
     Indication: OSTEOPOROSIS
     Dates: start: 20050701, end: 20050823

REACTIONS (6)
  - ANXIETY [None]
  - CLUSTER HEADACHE [None]
  - CONVULSION [None]
  - CYSTITIS [None]
  - FATIGUE [None]
  - FEELING ABNORMAL [None]
